FAERS Safety Report 25534818 (Version 1)
Quarter: 2025Q3

REPORT INFORMATION
  Report Type: Spontaneous
  Country: US (occurrence: US)
  Receive Date: 20250709
  Receipt Date: 20250709
  Transmission Date: 20251020
  Serious: Yes (Other)
  Sender: PFIZER
  Company Number: US-PFIZER INC-202500135006

PATIENT
  Age: 29 Year
  Sex: Female
  Weight: 70.31 kg

DRUGS (7)
  1. DEPO-PROVERA [Suspect]
     Active Substance: MEDROXYPROGESTERONE ACETATE
     Dates: start: 202506
  2. ADDERALL [Concomitant]
     Active Substance: AMPHETAMINE ASPARTATE\AMPHETAMINE SULFATE\DEXTROAMPHETAMINE SACCHARATE\DEXTROAMPHETAMINE SULFATE
     Indication: Attention deficit hyperactivity disorder
     Dates: start: 2020
  3. FISH OIL [Concomitant]
     Active Substance: FISH OIL
     Dosage: 3000 MG, 1X/DAY
     Dates: start: 202503
  4. FISH OIL [Concomitant]
     Active Substance: FISH OIL
     Dosage: 3000-4000MG A DAY
     Dates: start: 202505
  5. METHYLENE BLUE [Concomitant]
     Active Substance: METHYLENE BLUE
     Indication: Inflammation
     Dosage: 15 MG, DAILY
     Dates: start: 202503
  6. VITAMIN C [Concomitant]
     Active Substance: ASCORBIC ACID
     Indication: Inflammation
     Dosage: 15 MG, DAILY
     Dates: start: 202503
  7. CREATINE [Concomitant]
     Active Substance: CREATINE
     Indication: Inflammation
     Dosage: 5 G, 1X/DAY
     Dates: start: 202504

REACTIONS (5)
  - Suicidal ideation [Unknown]
  - Disease recurrence [Unknown]
  - Concussion [Recovering/Resolving]
  - Cognitive disorder [Unknown]
  - Headache [Unknown]
